FAERS Safety Report 18578367 (Version 1)
Quarter: 2020Q4

REPORT INFORMATION
  Report Type: Spontaneous
  Country: US (occurrence: US)
  Receive Date: 20201202
  Receipt Date: 20201202
  Transmission Date: 20210114
  Serious: Yes (Hospitalization)
  Sender: FDA-Public Use
  Company Number: None

PATIENT
  Age: 71 Year
  Sex: Male
  Weight: 97.52 kg

DRUGS (1)
  1. DAPSONE (DAPSONE 100MG TAB) [Suspect]
     Active Substance: DAPSONE
     Indication: INFECTION PROPHYLAXIS
     Route: 048
     Dates: start: 20200513, end: 20200609

REACTIONS (3)
  - Dyspnoea [None]
  - Respiratory depression [None]
  - Haemolytic anaemia [None]

NARRATIVE: CASE EVENT DATE: 20200609
